FAERS Safety Report 21582964 (Version 1)
Quarter: 2022Q4

REPORT INFORMATION
  Report Type: Spontaneous
  Country: US (occurrence: None)
  Receive Date: 20221110
  Receipt Date: 20221110
  Transmission Date: 20230112
  Serious: Yes (Hospitalization)
  Sender: FDA-Public Use
  Company Number: None

PATIENT
  Age: 54 Year
  Sex: Female
  Weight: 120.2 kg

DRUGS (1)
  1. TAXOL [Suspect]
     Active Substance: PACLITAXEL
     Dates: end: 20221007

REACTIONS (4)
  - Colitis [None]
  - Haematochezia [None]
  - Leukocytosis [None]
  - Palliative care [None]

NARRATIVE: CASE EVENT DATE: 20221105
